FAERS Safety Report 7637538-X (Version None)
Quarter: 2011Q3

REPORT INFORMATION
  Report Type: 
  Country: None (occurrence: None)
  Receive Date: 20110726
  Receipt Date: 20110718
  Transmission Date: 20111222
  Serious: No
  Sender: FDA-Public Use
  Company Number: US-PFIZER INC-2011164298

PATIENT
  Sex: Female

DRUGS (2)
  1. ESTRING [Suspect]
     Indication: VULVOVAGINAL DISCOMFORT
  2. ESTRING [Suspect]
     Indication: VULVOVAGINAL DRYNESS
     Route: 067

REACTIONS (1)
  - DRUG INEFFECTIVE [None]
